FAERS Safety Report 8844156 (Version 1)
Quarter: 2012Q4

REPORT INFORMATION
  Report Type: 
  Country: BR (occurrence: BR)
  Receive Date: 20121017
  Receipt Date: 20121017
  Transmission Date: 20130627
  Serious: Yes (Hospitalization)
  Sender: FDA-Public Use
  Company Number: BR-AMGEN-BRASP2012066046

PATIENT
  Age: 66 Year
  Sex: Male
  Weight: 85 kg

DRUGS (3)
  1. ENBREL [Suspect]
     Indication: PSORIASIS
     Dosage: 50 mg, 1x/week
     Route: 058
     Dates: start: 200805, end: 201208
  2. GLIFAGE [Concomitant]
     Dosage: 500 mg, 1x/day
     Route: 048
  3. GLIBENCLAMIDE [Concomitant]
     Dosage: 5 mg, 1x/day
     Route: 048

REACTIONS (1)
  - Infarction [Unknown]
